FAERS Safety Report 10521930 (Version 2)
Quarter: 2014Q4

REPORT INFORMATION
  Report Type: Spontaneous
  Country: US (occurrence: None)
  Receive Date: 20141014
  Receipt Date: 20141031
  Transmission Date: 20150528
  Serious: No
  Sender: FDA-Public Use
  Company Number: 2014-US-005334

PATIENT
  Age: 52 Year
  Sex: Male

DRUGS (1)
  1. XYREM [Suspect]
     Active Substance: SODIUM OXYBATE
     Indication: INSOMNIA
     Route: 048
     Dates: start: 201005, end: 2010

REACTIONS (8)
  - Pain [None]
  - Leg amputation [None]
  - Cellulitis [None]
  - Craniocerebral injury [None]
  - Prescribed overdose [None]
  - Suture rupture [None]
  - Off label use [None]
  - Amputation stump pain [None]

NARRATIVE: CASE EVENT DATE: 20140823
